FAERS Safety Report 17769997 (Version 1)
Quarter: 2020Q2

REPORT INFORMATION
  Report Type: Spontaneous
  Country: US (occurrence: US)
  Receive Date: 20200512
  Receipt Date: 20200512
  Transmission Date: 20200714
  Serious: Yes (Hospitalization)
  Sender: FDA-Public Use
  Company Number: US-PROCTER_AND_GAMBLE-GS20055413

PATIENT
  Sex: Male

DRUGS (1)
  1. CREST PRO-HEALTH CLINICAL [Suspect]
     Active Substance: CETYLPYRIDINIUM CHLORIDE
     Dosage: WHAT EVER THE DIRECTIONS SAID TO USE
     Route: 002
     Dates: start: 20200504, end: 20200504

REACTIONS (5)
  - Fall [Recovering/Resolving]
  - Hypersensitivity [Recovering/Resolving]
  - Asthenia [Recovering/Resolving]
  - Erythema [Recovering/Resolving]
  - Paranasal sinus discomfort [Recovering/Resolving]

NARRATIVE: CASE EVENT DATE: 202005
